FAERS Safety Report 7265063-7 (Version None)
Quarter: 2011Q1

REPORT INFORMATION
  Report Type: 
  Country: None (occurrence: None)
  Receive Date: 20110131
  Receipt Date: 20110124
  Transmission Date: 20110831
  Serious: Yes (Hospitalization, Other)
  Sender: FDA-Public Use
  Company Number: US-TEVA-264429USA

PATIENT
  Age: 44 Year
  Sex: Female

DRUGS (1)
  1. EPOPROSTENOL SODIUM FOR INJECTION, 0.5MG (BASE)/VIAL AND 1.5MG (BASE)/ [Suspect]
     Dosage: 10 NG/KG/MIN

REACTIONS (1)
  - INTERSTITIAL LUNG DISEASE [None]
